FAERS Safety Report 6218300-1 (Version None)
Quarter: 2009Q2

REPORT INFORMATION
  Report Type: 
  Country: None (occurrence: None)
  Receive Date: 20090604
  Receipt Date: 20090604
  Transmission Date: 20091009
  Serious: Yes (Congenital Anomaly)
  Sender: FDA-Public Use
  Company Number: None

PATIENT
  Sex: Male
  Weight: 2.1 kg

DRUGS (15)
  1. CARBOPLATIN [Suspect]
     Indication: NON-SMALL CELL LUNG CANCER STAGE III
     Dosage: 600 MG WEEKLY X 2 IV BOLUS
     Route: 040
     Dates: start: 20090414, end: 20090423
  2. TAXOL [Suspect]
     Indication: NON-SMALL CELL LUNG CANCER STAGE III
     Dosage: 200 MCG/M2 -BSA = 1.67 M2- WEEKLY X 2 IV BOLUS
     Route: 040
     Dates: start: 20090414, end: 20090423
  3. DOCUSATE [Concomitant]
  4. FERROUS SULFATE TAB [Concomitant]
  5. ROBITUSSIN [Concomitant]
  6. MORPHINE [Concomitant]
  7. OXYCODONE [Concomitant]
  8. ONDANSETRON [Concomitant]
  9. SENNA [Concomitant]
  10. PHENOBARBITAL TAB [Concomitant]
  11. MIDAZOLAM HCL [Concomitant]
  12. VITAMIN K [Concomitant]
  13. FENTANYL [Concomitant]
  14. SURVANTA [Concomitant]
  15. CAFFEINE CITRATE [Concomitant]

REACTIONS (5)
  - CAESAREAN SECTION [None]
  - CONVULSION [None]
  - INTRAVENTRICULAR HAEMORRHAGE NEONATAL [None]
  - MATERNAL DRUGS AFFECTING FOETUS [None]
  - PREMATURE BABY [None]
